FAERS Safety Report 21991493 (Version 5)
Quarter: 2024Q3

REPORT INFORMATION
  Report Type: Spontaneous
  Country: BR (occurrence: BR)
  Receive Date: 20230214
  Receipt Date: 20240906
  Transmission Date: 20241016
  Serious: Yes (Other)
  Sender: CELLTRION
  Company Number: BR-CELLTRION INC.-2022BR019668

PATIENT

DRUGS (2)
  1. INFLIXIMAB [Suspect]
     Active Substance: INFLIXIMAB
     Indication: Spondyloarthropathy
     Dosage: 3 AMPOULES EVERY 2 MONTHS
     Route: 042
     Dates: start: 202211
  2. INFLIXIMAB [Suspect]
     Active Substance: INFLIXIMAB
     Indication: Colitis ulcerative
     Dosage: 3 AMPOULES EVERY 2 MONTHS
     Route: 042
     Dates: start: 20230119

REACTIONS (19)
  - Bone pain [Not Recovered/Not Resolved]
  - Asthenia [Unknown]
  - Proctitis [Unknown]
  - Malaise [Not Recovered/Not Resolved]
  - Gastrointestinal inflammation [Unknown]
  - Throat irritation [Unknown]
  - Throat tightness [Unknown]
  - Loss of personal independence in daily activities [Unknown]
  - Defaecation urgency [Unknown]
  - Gastrointestinal disorder [Unknown]
  - Decreased interest [Unknown]
  - Weight decreased [Unknown]
  - Headache [Not Recovered/Not Resolved]
  - Pruritus [Not Recovered/Not Resolved]
  - Hypotension [Not Recovered/Not Resolved]
  - Cough [Not Recovered/Not Resolved]
  - Drug ineffective [Not Recovered/Not Resolved]
  - Therapeutic response changed [Unknown]
  - Incorrect drug administration rate [Unknown]
